FAERS Safety Report 5410891-3 (Version None)
Quarter: 2007Q3

REPORT INFORMATION
  Report Type: 
  Country: None (occurrence: None)
  Receive Date: 20070810
  Receipt Date: 20070731
  Transmission Date: 20080115
  Serious: Yes (Other)
  Sender: FDA-Public Use
  Company Number: DE-JNJFOC-20070701279

PATIENT
  Age: 51 Year
  Sex: Male

DRUGS (19)
  1. REMICADE [Suspect]
     Route: 042
  2. REMICADE [Suspect]
     Route: 042
  3. REMICADE [Suspect]
     Route: 042
  4. REMICADE [Suspect]
     Route: 042
  5. REMICADE [Suspect]
     Route: 042
  6. REMICADE [Suspect]
     Route: 042
  7. REMICADE [Suspect]
     Route: 042
  8. REMICADE [Suspect]
     Route: 042
  9. REMICADE [Suspect]
     Route: 042
  10. REMICADE [Suspect]
     Route: 042
  11. REMICADE [Suspect]
     Route: 042
  12. REMICADE [Suspect]
     Route: 042
  13. REMICADE [Suspect]
     Route: 042
  14. REMICADE [Suspect]
     Route: 042
  15. REMICADE [Suspect]
     Route: 042
  16. REMICADE [Suspect]
     Route: 042
  17. REMICADE [Suspect]
     Indication: ANKYLOSING SPONDYLITIS
     Route: 042
  18. PREDNISOLONE [Concomitant]
     Route: 048
  19. TRIAMTEREN [Concomitant]

REACTIONS (8)
  - FLUSHING [None]
  - HYPERHIDROSIS [None]
  - HYPERTENSION [None]
  - INFUSION RELATED REACTION [None]
  - NAUSEA [None]
  - OCULAR HYPERAEMIA [None]
  - RASH [None]
  - TACHYCARDIA [None]
